FAERS Safety Report 23387252 (Version 1)
Quarter: 2024Q1

REPORT INFORMATION
  Report Type: Spontaneous
  Country: US (occurrence: None)
  Receive Date: 20240109
  Receipt Date: 20240109
  Transmission Date: 20240409
  Serious: Yes (Hospitalization)
  Sender: FDA-Public Use
  Company Number: None

PATIENT
  Sex: Male

DRUGS (20)
  1. LENALIDOMIDE [Suspect]
     Active Substance: LENALIDOMIDE
     Indication: Follicular lymphoma
     Dosage: 15 MG ORAL?? TAKE 1 CAPSULE BY MOUTH ONCE DAILY STARTING THE SECOND MONTH OF TREATMENT: TAKE FOR 21
     Route: 048
     Dates: start: 20230725
  2. ACYCLOVIR [Concomitant]
     Active Substance: ACYCLOVIR
  3. ALBUTEROL AER HFA [Concomitant]
  4. ALLOPURINOL [Concomitant]
     Active Substance: ALLOPURINOL
  5. ASPIRIN LOW EC [Concomitant]
  6. AZITHROMYCIN [Concomitant]
     Active Substance: AZITHROMYCIN
  7. BENZONATATE [Concomitant]
     Active Substance: BENZONATATE
  8. BRILINTA [Concomitant]
     Active Substance: TICAGRELOR
  9. GLIPIZIDE XL [Concomitant]
     Active Substance: GLIPIZIDE
  10. JANUVIA [Concomitant]
     Active Substance: SITAGLIPTIN PHOSPHATE
  11. LIPITOR [Concomitant]
     Active Substance: ATORVASTATIN CALCIUM
  12. LISINOPRIL [Concomitant]
     Active Substance: LISINOPRIL
  13. METFORMIN [Concomitant]
     Active Substance: METFORMIN HYDROCHLORIDE
  14. METOPROLOL TARTRATE [Concomitant]
     Active Substance: METOPROLOL TARTRATE
  15. NOVOLOG [Concomitant]
     Active Substance: INSULIN ASPART
  16. NOVOLOG [Concomitant]
     Active Substance: INSULIN ASPART
  17. ONDANSETRON [Concomitant]
     Active Substance: ONDANSETRON
  18. PREDNISONE [Concomitant]
     Active Substance: PREDNISONE
  19. PROCHLORPER [Concomitant]
  20. TRAZODONE [Concomitant]
     Active Substance: TRAZODONE HYDROCHLORIDE

REACTIONS (2)
  - Hospitalisation [None]
  - Intentional dose omission [None]
